FAERS Safety Report 4595049-2 (Version None)
Quarter: 2005Q1

REPORT INFORMATION
  Report Type: 
  Country: None (occurrence: None)
  Receive Date: 20050224
  Receipt Date: 20050218
  Transmission Date: 20050727
  Serious: Yes (Hospitalization)
  Sender: FDA-Public Use
  Company Number: 05-02-0262

PATIENT
  Age: 75 Year
  Sex: Male

DRUGS (1)
  1. CLOZAPINE [Suspect]
     Indication: DEMENTIA
     Dosage: 50 MG QD ORAL
     Route: 048
     Dates: start: 20050101

REACTIONS (3)
  - ASTHENIA [None]
  - FALL [None]
  - HIP FRACTURE [None]
